FAERS Safety Report 16874836 (Version 1)
Quarter: 2019Q4

REPORT INFORMATION
  Report Type: Spontaneous
  Country: US (occurrence: US)
  Receive Date: 20191001
  Receipt Date: 20191001
  Transmission Date: 20200122
  Serious: Yes (Hospitalization)
  Sender: FDA-Public Use
  Company Number: US-ELI_LILLY_AND_COMPANY-US201909011167

PATIENT
  Sex: Male

DRUGS (4)
  1. NOVOLIN 30R [INSULIN HUMAN;INSULIN HUMAN INJE [Concomitant]
     Indication: TYPE 2 DIABETES MELLITUS
     Dosage: 48 U, EACH MORNING
     Route: 065
  2. HUMALOG [Suspect]
     Active Substance: INSULIN LISPRO
     Indication: TYPE 2 DIABETES MELLITUS
     Dosage: UNK UNK, PRN (SLIDING SCALE)
     Route: 058
  3. NOVOLIN 30R [INSULIN HUMAN;INSULIN HUMAN INJE [Concomitant]
     Dosage: 30 U, DAILY (NIGHT)
     Route: 065
  4. HUMALOG [Suspect]
     Active Substance: INSULIN LISPRO
     Dosage: UNK UNK, PRN (SLIDING SCALE)
     Route: 058

REACTIONS (3)
  - Cardiac disorder [Unknown]
  - Spinal compression fracture [Unknown]
  - Hyperlipidaemia [Unknown]
